FAERS Safety Report 8421867-6 (Version None)
Quarter: 2012Q2

REPORT INFORMATION
  Report Type: 
  Country: None (occurrence: None)
  Receive Date: 20120608
  Receipt Date: 20120601
  Transmission Date: 20120825
  Serious: No
  Sender: FDA-Public Use
  Company Number: US-PFIZER INC-2012132704

PATIENT
  Sex: Male
  Weight: 170 kg

DRUGS (9)
  1. METOPROLOL TARTRATE [Suspect]
     Indication: HYPERTENSION
     Dosage: 50 MG, 3X/DAY
  2. LISINOPRIL [Suspect]
     Indication: HYPERTENSION
     Dosage: UNK
  3. BUPROPION HCL [Suspect]
     Dosage: 150 MG, UNK
  4. BUPROPION HCL [Suspect]
     Dosage: UNK
  5. METFORMIN HCL [Suspect]
     Indication: DIABETES MELLITUS
     Dosage: 500 MG, 2X/DAY
  6. FUROSEMIDE [Suspect]
     Indication: OEDEMA PERIPHERAL
     Dosage: UNK
  7. PRAVASTATIN SODIUM [Suspect]
     Dosage: 40 MG, 1X/DAY
  8. ZYVOX [Suspect]
     Indication: STAPHYLOCOCCAL INFECTION
     Dosage: 600 MG, 2X/DAY
     Route: 048
     Dates: start: 20120601
  9. BUPROPION HCL [Suspect]
     Indication: DEPRESSION
     Dosage: 150 MG, 2X/DAY

REACTIONS (3)
  - FOOD POISONING [None]
  - NAUSEA [None]
  - DIARRHOEA [None]
